FAERS Safety Report 22611083 (Version 1)
Quarter: 2023Q2

REPORT INFORMATION
  Report Type: Spontaneous
  Country: US (occurrence: None)
  Receive Date: 20230616
  Receipt Date: 20230616
  Transmission Date: 20230721
  Serious: Yes (Hospitalization)
  Sender: FDA-Public Use
  Company Number: US-ROCHE-3368566

PATIENT
  Sex: Female

DRUGS (1)
  1. OCREVUS [Suspect]
     Active Substance: OCRELIZUMAB
     Indication: Multiple sclerosis
     Dosage: 150 MG IV X 2, 2 WEEKS
     Route: 042

REACTIONS (2)
  - Urinary tract infection [Recovered/Resolved]
  - Multiple sclerosis [Recovered/Resolved]
